FAERS Safety Report 6387023-0 (Version None)
Quarter: 2009Q4

REPORT INFORMATION
  Report Type: 
  Country: None (occurrence: None)
  Receive Date: 20091002
  Receipt Date: 20090922
  Transmission Date: 20100525
  Serious: Yes (Death, Congenital Anomaly)
  Sender: FDA-Public Use
  Company Number: US-WATSON-2008-04959

PATIENT
  Sex: Female

DRUGS (7)
  1. PREDNISONE (WATSON LABORATORIES) [Suspect]
     Indication: PROPHYLAXIS AGAINST TRANSPLANT REJECTION
     Dosage: 2.5 MG, BID
     Route: 065
     Dates: start: 20070101, end: 20080101
  2. FOLIC ACID [Suspect]
     Indication: DRUG USE FOR UNKNOWN INDICATION
     Dosage: UNK
     Route: 065
  3. ACYCLOVIR [Suspect]
     Indication: PROPHYLAXIS
     Dosage: 400 MG, BID
  4. MYCOPHENOLATE MOFETIL [Suspect]
     Indication: PROPHYLAXIS AGAINST TRANSPLANT REJECTION
     Dosage: 1000 MG, BID
     Route: 065
  5. TACROLIMUS [Suspect]
     Indication: PROPHYLAXIS AGAINST TRANSPLANT REJECTION
     Dosage: 5 MG, BID
     Route: 065
  6. BACTRIM [Suspect]
     Indication: PROPHYLAXIS
     Dosage: 800 MG, BID
     Route: 065
  7. PRENATAL VITAMINS                  /01549301/ [Suspect]
     Indication: SUPPLEMENTATION THERAPY
     Dosage: UNK
     Route: 065

REACTIONS (14)
  - CARDIO-RESPIRATORY ARREST NEONATAL [None]
  - CATARACT CONGENITAL [None]
  - CLEFT LIP AND PALATE [None]
  - CONGENITAL AORTIC STENOSIS [None]
  - CONGENITAL CENTRAL NERVOUS SYSTEM ANOMALY [None]
  - CONGENITAL HAND MALFORMATION [None]
  - CONGENITAL MUSCULOSKELETAL ANOMALY [None]
  - DOUBLE OUTLET RIGHT VENTRICLE [None]
  - HYPERTELORISM OF ORBIT [None]
  - INTESTINAL MALROTATION [None]
  - MICROPHTHALMOS [None]
  - MICROTIA [None]
  - MITRAL VALVE STENOSIS [None]
  - VENTRICULAR HYPOPLASIA [None]
